FAERS Safety Report 8394806-4 (Version None)
Quarter: 2012Q2

REPORT INFORMATION
  Report Type: 
  Country: None (occurrence: None)
  Receive Date: 20120530
  Receipt Date: 20120523
  Transmission Date: 20120825
  Serious: Yes (Hospitalization, Other)
  Sender: FDA-Public Use
  Company Number: GB-BRISTOL-MYERS SQUIBB COMPANY-16440620

PATIENT
  Age: 78 Year
  Sex: Male

DRUGS (2)
  1. LOPERAMIDE [Suspect]
     Dosage: CAPSULES
  2. QUESTRAN [Suspect]
     Dosage: 1DF=THREE POWDER SACHETS

REACTIONS (1)
  - CEREBROVASCULAR ACCIDENT [None]
